FAERS Safety Report 14320764 (Version 1)
Quarter: 2017Q4

REPORT INFORMATION
  Report Type: Report from Study
  Country: None (occurrence: US)
  Receive Date: 20171223
  Receipt Date: 20171223
  Transmission Date: 20180321
  Serious: Yes (Other)
  Sender: FDA-Public Use
  Company Number: US-ABBVIE-17K-163-1893122-00

PATIENT
  Sex: Female

DRUGS (2)
  1. HUMIRA [Suspect]
     Active Substance: ADALIMUMAB
     Indication: PSORIASIS
     Route: 058
     Dates: start: 2016, end: 2016
  2. HUMIRA [Suspect]
     Active Substance: ADALIMUMAB
     Dosage: ONE WEEK LATER
     Route: 058
     Dates: start: 2016, end: 2017

REACTIONS (7)
  - Foetal death [Unknown]
  - Uterine haematoma [Recovered/Resolved]
  - Psoriasis [Unknown]
  - Progesterone decreased [Recovered/Resolved]
  - Exposure during pregnancy [Unknown]
  - Abortion spontaneous [Unknown]
  - Uterine haemorrhage [Recovered/Resolved]

NARRATIVE: CASE EVENT DATE: 2017
